FAERS Safety Report 6987618-7 (Version None)
Quarter: 2010Q3

REPORT INFORMATION
  Report Type: 
  Country: None (occurrence: None)
  Receive Date: 20100916
  Receipt Date: 20100908
  Transmission Date: 20110219
  Serious: Yes (Hospitalization)
  Sender: FDA-Public Use
  Company Number: FR-ASTRAZENECA-2010SE42249

PATIENT
  Age: 971 Month
  Sex: Male

DRUGS (8)
  1. CRESTOR [Suspect]
     Route: 048
     Dates: start: 20100402, end: 20100505
  2. IRBESARTAN [Suspect]
     Route: 048
     Dates: start: 20100402, end: 20100502
  3. LASIX [Concomitant]
  4. INIPOMP [Concomitant]
  5. BISOPROLOL FUMARATE [Concomitant]
  6. KARDEGIC [Concomitant]
  7. ZYLORIC [Concomitant]
  8. AMLODIPINE [Concomitant]

REACTIONS (1)
  - INTERSTITIAL LUNG DISEASE [None]
